FAERS Safety Report 7960424-2 (Version None)
Quarter: 2011Q4

REPORT INFORMATION
  Report Type: 
  Country: None (occurrence: None)
  Receive Date: 20111206
  Receipt Date: 20111128
  Transmission Date: 20120403
  Serious: Yes (Disabling, Other)
  Sender: FDA-Public Use
  Company Number: JP-CELGENEUS-087-21880-11041030

PATIENT
  Sex: Female

DRUGS (10)
  1. MAGTECT [Concomitant]
     Indication: PROPHYLAXIS
     Dosage: 30 MILLILITER
     Route: 048
     Dates: start: 20110224, end: 20110323
  2. NSAID [Concomitant]
     Route: 065
  3. REVLIMID [Suspect]
     Indication: MULTIPLE MYELOMA
     Dosage: 15 MILLIGRAM
     Route: 048
     Dates: start: 20110224, end: 20110406
  4. REVLIMID [Suspect]
     Dosage: 15 MILLIGRAM
     Route: 048
     Dates: start: 20110324, end: 20110405
  5. ARGAMATE [Concomitant]
     Dosage: 50 GRAM
     Route: 048
     Dates: start: 20110224, end: 20110323
  6. LENADEX [Suspect]
     Indication: MULTIPLE MYELOMA
     Dosage: 8 MILLIGRAM
     Route: 048
     Dates: start: 20110224, end: 20110227
  7. MAGMITT [Concomitant]
     Dosage: 660 MILLIGRAM
     Route: 048
     Dates: start: 20110224, end: 20110323
  8. LENADEX [Suspect]
     Dosage: 8 MILLIGRAM
     Route: 048
     Dates: start: 20110324, end: 20110327
  9. OMEPRAZOLE [Concomitant]
     Indication: PROPHYLAXIS
     Dosage: 20 MILLIGRAM
     Route: 048
     Dates: start: 20110224, end: 20110323
  10. ASPIRIN [Concomitant]
     Indication: PROPHYLAXIS
     Dosage: 100 MILLIGRAM
     Route: 048
     Dates: start: 20110224, end: 20110323

REACTIONS (5)
  - ENTEROCOLITIS [None]
  - RENAL FAILURE [None]
  - THROMBOCYTOPENIA [None]
  - PYREXIA [None]
  - DEHYDRATION [None]
